FAERS Safety Report 20334749 (Version 1)
Quarter: 2022Q1

REPORT INFORMATION
  Report Type: Spontaneous
  Country: FR (occurrence: FR)
  Receive Date: 20220114
  Receipt Date: 20220114
  Transmission Date: 20220423
  Serious: Yes (Death, Other)
  Sender: FDA-Public Use
  Company Number: FR-AMGEN-FRASP2022004348

PATIENT

DRUGS (2)
  1. PANITUMUMAB [Suspect]
     Active Substance: PANITUMUMAB
     Indication: Squamous cell carcinoma of skin
     Dosage: UNK
     Route: 065
  2. PANITUMUMAB [Suspect]
     Active Substance: PANITUMUMAB
     Indication: Off label use

REACTIONS (8)
  - Death [Fatal]
  - Squamous cell carcinoma of skin [Unknown]
  - Toxicity to various agents [Unknown]
  - Adverse event [Unknown]
  - Skin toxicity [Unknown]
  - Fatigue [Unknown]
  - Off label use [Unknown]
  - Ocular toxicity [Unknown]
